FAERS Safety Report 5837711-7 (Version None)
Quarter: 2008Q3

REPORT INFORMATION
  Report Type: 
  Country: None (occurrence: None)
  Receive Date: 20080807
  Receipt Date: 20080729
  Transmission Date: 20090109
  Serious: Yes (Hospitalization, Disabling, Other)
  Sender: FDA-Public Use
  Company Number: US-MERCK-0806USA08821

PATIENT
  Age: 70 Year
  Sex: Female
  Weight: 114 kg

DRUGS (3)
  1. JANUVIA [Suspect]
     Indication: TYPE 2 DIABETES MELLITUS
     Route: 048
     Dates: start: 20070720, end: 20080601
  2. METFORMIN [Concomitant]
     Route: 065
  3. INSULIN [Concomitant]
     Route: 065

REACTIONS (2)
  - CHOLELITHIASIS [None]
  - PANCREATITIS [None]
